FAERS Safety Report 17171322 (Version 1)
Quarter: 2019Q4

REPORT INFORMATION
  Report Type: Spontaneous
  Country: US (occurrence: US)
  Receive Date: 20191218
  Receipt Date: 20191218
  Transmission Date: 20200122
  Serious: No
  Sender: FDA-Public Use
  Company Number: US-SUPERNUS PHARMACEUTICALS, INC.-2019SUP00391

PATIENT
  Age: 56 Year
  Sex: Female
  Weight: 102.04 kg

DRUGS (1)
  1. TROKENDI XR [Suspect]
     Active Substance: TOPIRAMATE
     Indication: OVERWEIGHT
     Dosage: 25 MG, 2X/DAY
     Route: 048
     Dates: start: 20190701, end: 201907

REACTIONS (12)
  - Off label use [Recovered/Resolved]
  - Rash [Recovering/Resolving]
  - Pain in extremity [Recovering/Resolving]
  - Tremor [Recovering/Resolving]
  - Fatigue [Recovering/Resolving]
  - Mood altered [Recovering/Resolving]
  - Memory impairment [Recovering/Resolving]
  - Palpitations [Recovering/Resolving]
  - Hypophagia [Recovering/Resolving]
  - Headache [Recovering/Resolving]
  - Speech disorder [Recovering/Resolving]
  - Dry mouth [Recovering/Resolving]

NARRATIVE: CASE EVENT DATE: 20190701
